FAERS Safety Report 23219285 (Version 1)
Quarter: 2023Q4

REPORT INFORMATION
  Report Type: Report from Study
  Country: CA (occurrence: CA)
  Receive Date: 20231122
  Receipt Date: 20231122
  Transmission Date: 20240109
  Serious: Yes (Other)
  Sender: FDA-Public Use
  Company Number: CA-JAZZ-2022-CA-019427

PATIENT
  Age: 63 Year
  Sex: Female

DRUGS (12)
  1. XYREM [Suspect]
     Active Substance: SODIUM OXYBATE
     Indication: Cataplexy
     Dosage: 0 GRAM
     Route: 048
     Dates: start: 200304
  2. XYREM [Suspect]
     Active Substance: SODIUM OXYBATE
     Indication: Narcolepsy
     Dosage: 9.5 GRAM, TWO EQUAL DOSES
     Route: 048
     Dates: start: 2006
  3. XYREM [Suspect]
     Active Substance: SODIUM OXYBATE
     Dosage: 7.5 GRAM TWO EQUAL PARTS
     Route: 048
     Dates: end: 201804
  4. XYREM [Suspect]
     Active Substance: SODIUM OXYBATE
     Dosage: 9 GRAM, TWO EQUAL DOSES
     Route: 048
     Dates: start: 201804
  5. XYREM [Suspect]
     Active Substance: SODIUM OXYBATE
     Dosage: 9 GRAM, THREE EQUAL DOSES
     Route: 048
     Dates: start: 20210702, end: 2023
  6. XYREM [Suspect]
     Active Substance: SODIUM OXYBATE
     Dosage: 11 GRAM
     Route: 048
     Dates: start: 2023
  7. XYREM [Suspect]
     Active Substance: SODIUM OXYBATE
     Dosage: 9 GRAM DIVIDED IN TWO EQUAL DOSES (QHS AND 2.5 -4HRS AFTER 1ST DOSE)
     Route: 048
     Dates: start: 2023
  8. ALERTEC [CETIRIZINE HYDROCHLORIDE] [Concomitant]
     Indication: Product used for unknown indication
     Dosage: 200MG DAILY IN THE MORNING AND AFTERNOON
     Route: 048
  9. ALERTEC [CETIRIZINE HYDROCHLORIDE] [Concomitant]
     Dosage: 100 MILLIGRAM DAILY IN THE EVENING AS NEEDED
     Route: 048
  10. METFORMIN [Concomitant]
     Active Substance: METFORMIN HYDROCHLORIDE
     Indication: Product used for unknown indication
     Dosage: 250 MILLIGRAM TWICE DAILY
     Route: 048
  11. HYDROCHLOROTHIAZIDE [Concomitant]
     Active Substance: HYDROCHLOROTHIAZIDE
     Indication: Product used for unknown indication
     Dosage: 12.5 MILLIGRAM TWICE DAILY
     Route: 048
  12. SYNTHROID [Concomitant]
     Active Substance: LEVOTHYROXINE SODIUM
     Indication: Product used for unknown indication
     Dosage: 0.175 MILLIGRAM DAILY
     Route: 048

REACTIONS (5)
  - Multiple fractures [Unknown]
  - Treatment noncompliance [Unknown]
  - Off label use [Unknown]
  - Therapeutic response decreased [Unknown]
  - Intentional product use issue [Unknown]

NARRATIVE: CASE EVENT DATE: 20231101
